FAERS Safety Report 12179553 (Version 2)
Quarter: 2016Q2

REPORT INFORMATION
  Report Type: Report from Study
  Country: FR (occurrence: FR)
  Receive Date: 20160314
  Receipt Date: 20160421
  Transmission Date: 20160815
  Serious: Yes (Death)
  Sender: FDA-Public Use
  Company Number: FR-ABBVIE-16P-056-1582876-00

PATIENT
  Age: 79 Year
  Sex: Male

DRUGS (4)
  1. RIVOTRIL [Concomitant]
     Active Substance: CLONAZEPAM
     Indication: SLEEP DISORDER
     Dosage: 3 DROPS AT 21:00 PM
     Dates: end: 20150227
  2. DUODOPA [Suspect]
     Active Substance: CARBIDOPA\LEVODOPA
     Indication: PRODUCT USED FOR UNKNOWN INDICATION
     Dosage: CONT. DAY FLOW RATE: 25 ML/H, DAY RHYTHM:7 AM20 PM.
     Route: 050
     Dates: start: 20140620, end: 20150220
  3. CLOZAPINE. [Concomitant]
     Active Substance: CLOZAPINE
     Indication: SUBSTANCE-INDUCED PSYCHOTIC DISORDER
     Dosage: 1DF AT 8.00 AM, 1DF AT 12.00 PM, 1 DF AT 16.00 PM AND 3DF AT
  4. SINEMET [Concomitant]
     Active Substance: CARBIDOPA\LEVODOPA
     Indication: PARKINSON^S DISEASE
     Dosage: 1 DOSAGE FORM
     Dates: end: 20150227

REACTIONS (6)
  - General physical health deterioration [Unknown]
  - Venous thrombosis limb [Fatal]
  - Unintentional medical device removal [Unknown]
  - Dementia [Fatal]
  - Abnormal behaviour [Fatal]
  - Pneumonia aspiration [Fatal]

NARRATIVE: CASE EVENT DATE: 201503
